FAERS Safety Report 9334984 (Version 1)
Quarter: 2013Q2

REPORT INFORMATION
  Report Type: Spontaneous
  Country: DE (occurrence: DE)
  Receive Date: 20130606
  Receipt Date: 20130606
  Transmission Date: 20140414
  Serious: Yes (Other)
  Sender: FDA-Public Use
  Company Number: DE-ASTRAZENECA-2013SE16810

PATIENT
  Sex: Female

DRUGS (1)
  1. SEROQUEL PROLONG [Suspect]
     Indication: PSYCHOTIC DISORDER
     Route: 048
     Dates: start: 201109

REACTIONS (1)
  - Exposure during pregnancy [Recovered/Resolved]
